FAERS Safety Report 18069871 (Version 1)
Quarter: 2020Q3

REPORT INFORMATION
  Report Type: Spontaneous
  Country: FR (occurrence: FR)
  Receive Date: 20200727
  Receipt Date: 20200727
  Transmission Date: 20201103
  Serious: Yes (Hospitalization)
  Sender: FDA-Public Use
  Company Number: FR-SUN PHARMACEUTICAL INDUSTRIES LTD-2020RR-254807

PATIENT
  Age: 82 Year
  Sex: Female
  Weight: 51 kg

DRUGS (2)
  1. PREGABALIN. [Suspect]
     Active Substance: PREGABALIN
     Indication: POISONING DELIBERATE
     Dosage: UNK
     Route: 048
     Dates: start: 20200622, end: 20200622
  2. BROMAZEPAM [Suspect]
     Active Substance: BROMAZEPAM
     Indication: POISONING DELIBERATE
     Dosage: UNK
     Route: 048
     Dates: start: 20200622, end: 20200622

REACTIONS (2)
  - Bundle branch block left [Recovered/Resolved]
  - Altered state of consciousness [Recovered/Resolved]

NARRATIVE: CASE EVENT DATE: 20200622
